FAERS Safety Report 8255603-3 (Version None)
Quarter: 2012Q2

REPORT INFORMATION
  Report Type: 
  Country: None (occurrence: None)
  Receive Date: 20120403
  Receipt Date: 20120322
  Transmission Date: 20120825
  Serious: Yes (Other)
  Sender: FDA-Public Use
  Company Number: PHEH2012US006336

PATIENT
  Sex: Male
  Weight: 75.737 kg

DRUGS (9)
  1. TASIGNA [Suspect]
     Indication: CHRONIC MYELOID LEUKAEMIA
     Dosage: 400 MG, DAILY
     Route: 048
     Dates: start: 20120212, end: 20120213
  2. FLOMAX [Concomitant]
     Dosage: 0.4 MG,
  3. AVODART [Concomitant]
     Dosage: 0.5 MG,
  4. AMLODIPINE [Concomitant]
     Dosage: 5 MG,
  5. COLACE [Concomitant]
     Dosage: 100 MG,
  6. SIMVASTATIN [Concomitant]
     Dosage: 10 MG,
  7. FINASTERIDE [Concomitant]
     Dosage: 5 MG,
  8. ASPIRIN [Concomitant]
     Dosage: 825 MG,
  9. TASIGNA [Suspect]
     Dosage: 200 MG, DAILY
     Dates: start: 20120214

REACTIONS (5)
  - PARAESTHESIA [None]
  - CHEST PAIN [None]
  - HYPOAESTHESIA [None]
  - PALPITATIONS [None]
  - ATRIAL FIBRILLATION [None]
